FAERS Safety Report 17129056 (Version 1)
Quarter: 2019Q4

REPORT INFORMATION
  Report Type: Spontaneous
  Country: MX (occurrence: MX)
  Receive Date: 20191209
  Receipt Date: 20191209
  Transmission Date: 20200122
  Serious: Yes (Death)
  Sender: FDA-Public Use
  Company Number: NVSC2019MX019134

PATIENT
  Sex: Female
  Weight: 68 kg

DRUGS (1)
  1. TASIGNA [Suspect]
     Active Substance: NILOTINIB
     Indication: LEUKAEMIA
     Dosage: 200 MG, BID (2 DF)
     Route: 048
     Dates: start: 20191019

REACTIONS (3)
  - Myalgia [Unknown]
  - Pneumonia [Fatal]
  - Decreased appetite [Unknown]
